FAERS Safety Report 9018098 (Version 2)
Quarter: 2013Q2

REPORT INFORMATION
  Report Type: Spontaneous
  Country: US (occurrence: US)
  Receive Date: 20130117
  Receipt Date: 20130520
  Transmission Date: 20140414
  Serious: Yes (Death, Hospitalization)
  Sender: FDA-Public Use
  Company Number: US-B.I. PHARMACEUTICALS,INC./RIDGEFIELD-2013-BI-00929BP

PATIENT
  Age: 79 Year
  Sex: Female
  Weight: 49.9 kg

DRUGS (21)
  1. PRADAXA [Suspect]
     Indication: ATRIAL FIBRILLATION
     Dosage: 150 MG
     Dates: start: 20111118, end: 20120202
  2. TYLENOL [Concomitant]
  3. ROXICODONE [Concomitant]
     Indication: PAIN
  4. FOLATE [Concomitant]
     Dosage: 400 MCG
  5. FERROUS SULFATE [Concomitant]
     Dosage: 65 MG
  6. COLACE [Concomitant]
     Dosage: 100 MG
  7. NEXIUM [Concomitant]
     Dosage: 40 MG
  8. ASPIRIN [Concomitant]
     Dosage: 81 MG
  9. MIRALAX [Concomitant]
     Dosage: 17 G
  10. SYNTHROID [Concomitant]
     Dosage: 50 MCG
  11. POTASSIUM [Concomitant]
     Dosage: 20 MEQ
  12. LASIX [Concomitant]
     Dosage: 20 MG
  13. NORVASC [Concomitant]
     Dosage: 5 MG
     Dates: start: 2002, end: 20120203
  14. CORDARONE [Concomitant]
     Dosage: 200 MG
     Dates: start: 2002, end: 20120203
  15. LANOXIN [Concomitant]
     Dosage: 0.125 MG
     Route: 048
     Dates: start: 2002, end: 20120203
  16. LOPRESSOR [Concomitant]
     Dosage: 50 MG
  17. MEGESTROL ACETATE [Concomitant]
     Dosage: 20 ML
     Route: 048
  18. RENAGEL [Concomitant]
     Dosage: 2400 MG
  19. LIPITOR [Concomitant]
     Dosage: 40 MG
     Route: 048
  20. PLAVIX [Concomitant]
  21. AGGRENOX [Concomitant]

REACTIONS (1)
  - Upper gastrointestinal haemorrhage [Fatal]
